FAERS Safety Report 9860605 (Version 2)
Quarter: 2014Q1

REPORT INFORMATION
  Report Type: Spontaneous
  Country: GB (occurrence: GB)
  Receive Date: 20140202
  Receipt Date: 20140202
  Transmission Date: 20141002
  Serious: No
  Sender: FDA-Public Use
  Company Number: GB-ALLERGAN-1217915US

PATIENT
  Sex: Male
  Weight: 79 kg

DRUGS (3)
  1. VISTABEL [Suspect]
     Indication: SKIN WRINKLING
     Dosage: 50 UNITS, SINGLE
     Route: 030
     Dates: start: 20121128, end: 20121128
  2. VISTABEL [Suspect]
     Indication: SKIN WRINKLING
     Dosage: 25 UNITS, SINGLE
     Route: 030
     Dates: start: 20121210, end: 20121210
  3. VISTABEL [Suspect]
     Dosage: 12.5 UNITS, SINGLE
     Route: 030
     Dates: start: 20130112, end: 20130112

REACTIONS (3)
  - Rash [Recovering/Resolving]
  - Pruritus [Recovering/Resolving]
  - Drug ineffective [Unknown]
